FAERS Safety Report 10562332 (Version 1)
Quarter: 2014Q4

REPORT INFORMATION
  Report Type: Spontaneous
  Country: DE (occurrence: None)
  Receive Date: 20141031
  Receipt Date: 20141031
  Transmission Date: 20150529
  Serious: Yes (Other)
  Sender: FDA-Public Use
  Company Number: 2600102

PATIENT
  Age: 51 Year
  Sex: Male

DRUGS (2)
  1. VINORELBINE TARTRATE. [Suspect]
     Active Substance: VINORELBINE TARTRATE
     Indication: NON-SMALL CELL LUNG CANCER
     Dosage: 56.7 MG MILLIGRAM(S),(TOTAL)
     Route: 042
     Dates: start: 20130906, end: 20131008
  2. CISPLATIN. [Suspect]
     Active Substance: CISPLATIN
     Indication: NON-SMALL CELL LUNG CANCER
     Dosage: 142 MG MILLIGRAM(S)(TOTAL) INTRAVENOUS(NOT OTHERWISE SPECIFIED)
     Route: 042
     Dates: start: 20130906, end: 20131001

REACTIONS (2)
  - Ototoxicity [None]
  - Tinnitus [None]

NARRATIVE: CASE EVENT DATE: 20130906
